FAERS Safety Report 9190906 (Version 1)
Quarter: 2013Q1

REPORT INFORMATION
  Report Type: Spontaneous
  Country: US (occurrence: None)
  Receive Date: 20120703
  Receipt Date: 20120703
  Transmission Date: 20140127
  Serious: No
  Sender: FDA-Public Use
  Company Number: PHEH2012US008838

PATIENT
  Sex: Female
  Weight: 61.2 kg

DRUGS (2)
  1. GILENYA (FTY)CAPSULE, 0.5 MG [Suspect]
     Indication: MULTIPLE SCLEROSIS
     Route: 048
     Dates: start: 20120419
  2. CONTRACEPTIVES (NO INGREDIENTS/SUBSTANCES) [Concomitant]

REACTIONS (1)
  - Vaginal haemorrhage [None]
